FAERS Safety Report 19157095 (Version 1)
Quarter: 2021Q2

REPORT INFORMATION
  Report Type: Spontaneous
  Country: US (occurrence: US)
  Receive Date: 20210419
  Receipt Date: 20210419
  Transmission Date: 20210717
  Serious: Yes (Hospitalization)
  Sender: FDA-Public Use
  Company Number: None

PATIENT
  Age: 31 Year
  Sex: Male
  Weight: 73.48 kg

DRUGS (4)
  1. CASIRIVIMAB. [Concomitant]
     Active Substance: CASIRIVIMAB
     Dates: start: 20210330, end: 20210330
  2. IMDEVIMAB. [Concomitant]
     Active Substance: IMDEVIMAB
     Dates: start: 20210330, end: 20210330
  3. IMDEVIMAB. [Suspect]
     Active Substance: IMDEVIMAB
     Indication: COVID-19
     Route: 042
     Dates: start: 20210330, end: 20210330
  4. CASIRIVIMAB. [Suspect]
     Active Substance: CASIRIVIMAB
     Indication: COVID-19
     Route: 042
     Dates: start: 20210330, end: 20210330

REACTIONS (3)
  - Guillain-Barre syndrome [None]
  - Bladder obstruction [None]
  - Myocarditis [None]

NARRATIVE: CASE EVENT DATE: 20210404
